FAERS Safety Report 15327802 (Version 1)
Quarter: 2018Q3

REPORT INFORMATION
  Report Type: Spontaneous
  Country: US (occurrence: US)
  Receive Date: 20180828
  Receipt Date: 20180828
  Transmission Date: 20181010
  Serious: No
  Sender: FDA-Public Use
  Company Number: US-ROCHE-2128974

PATIENT
  Age: 24 Year
  Sex: Male
  Weight: 132 kg

DRUGS (2)
  1. HEMLIBRA [Suspect]
     Active Substance: EMICIZUMAB-KXWH
     Indication: FACTOR VIII DEFICIENCY
     Route: 058
     Dates: start: 20180104
  2. HEMLIBRA [Suspect]
     Active Substance: EMICIZUMAB-KXWH
     Dosage: ONGOING:YES
     Route: 058

REACTIONS (1)
  - Von Willebrand^s factor antigen decreased [Not Recovered/Not Resolved]

NARRATIVE: CASE EVENT DATE: 20180503
